FAERS Safety Report 8095504-7 (Version None)
Quarter: 2012Q1

REPORT INFORMATION
  Report Type: 
  Country: None (occurrence: None)
  Receive Date: 20120129
  Receipt Date: 20111216
  Transmission Date: 20120608
  Serious: No
  Sender: FDA-Public Use
  Company Number: US-ABBOTT-11P-163-0884312-00

PATIENT
  Sex: Female

DRUGS (2)
  1. HUMIRA [Suspect]
     Dosage: 2 PENS ON DAY 15
     Route: 058
     Dates: start: 20111201
  2. HUMIRA [Suspect]
     Indication: CROHN'S DISEASE
     Dosage: 4 PENS ON DAY 1
     Route: 058
     Dates: start: 20111201, end: 20111201

REACTIONS (1)
  - NAUSEA [None]
